FAERS Safety Report 18526483 (Version 3)
Quarter: 2020Q4

REPORT INFORMATION
  Report Type: Spontaneous
  Country: US (occurrence: US)
  Receive Date: 20201120
  Receipt Date: 20201224
  Transmission Date: 20210114
  Serious: No
  Sender: FDA-Public Use
  Company Number: US-GLAXOSMITHKLINE-US2020AMR225386

PATIENT
  Sex: Female

DRUGS (2)
  1. ZEJULA [Suspect]
     Active Substance: NIRAPARIB
     Indication: OVARIAN CANCER
     Dosage: 200 MG, QD
     Route: 048
     Dates: start: 20201029
  2. ZEJULA [Suspect]
     Active Substance: NIRAPARIB
     Dosage: 200 MG, QD

REACTIONS (11)
  - Decreased appetite [Unknown]
  - Dyspnoea [Unknown]
  - Full blood count decreased [Unknown]
  - Carbohydrate antigen 125 increased [Not Recovered/Not Resolved]
  - Myalgia [Unknown]
  - Nausea [Unknown]
  - Dizziness [Unknown]
  - Heart rate increased [Unknown]
  - Fatigue [Not Recovered/Not Resolved]
  - Sleep disorder [Unknown]
  - Hypertension [Recovered/Resolved]
